FAERS Safety Report 18560391 (Version 2)
Quarter: 2021Q1

REPORT INFORMATION
  Report Type: Spontaneous
  Country: US (occurrence: US)
  Receive Date: 20201130
  Receipt Date: 20210106
  Transmission Date: 20210419
  Serious: Yes (Other)
  Sender: FDA-Public Use
  Company Number: US-AMNEAL PHARMACEUTICALS-2020-AMRX-03669

PATIENT
  Age: 59 Year
  Sex: Male

DRUGS (2)
  1. RYTARY [Suspect]
     Active Substance: CARBIDOPA\LEVODOPA
     Dosage: 61.25/245MG, 2 CAPSULES, TID
     Route: 048
     Dates: start: 20201014, end: 20201118
  2. RYTARY [Suspect]
     Active Substance: CARBIDOPA\LEVODOPA
     Indication: PRODUCT USED FOR UNKNOWN INDICATION
     Dosage: 48.75/195MG,  2 CAPSULES, TID
     Route: 048

REACTIONS (2)
  - Brain stem syndrome [Unknown]
  - Therapy cessation [Unknown]

NARRATIVE: CASE EVENT DATE: 20201118
